FAERS Safety Report 8027948-3 (Version None)
Quarter: 2012Q1

REPORT INFORMATION
  Report Type: 
  Country: None (occurrence: None)
  Receive Date: 20120104
  Receipt Date: 20111223
  Transmission Date: 20120608
  Serious: Yes (Other)
  Sender: FDA-Public Use
  Company Number: 2011-01453

PATIENT
  Age: 8 Year
  Sex: Female
  Weight: 80 kg

DRUGS (2)
  1. CEFDINIR [Suspect]
     Indication: INFECTION
     Dosage: 150 MILLIGRAM/MILLILITERS, EVERY 8 HOURS, PER ORAL
     Route: 048
     Dates: start: 20111219
  2. INSULIN [Concomitant]

REACTIONS (1)
  - BLOOD GLUCOSE INCREASED [None]
